FAERS Safety Report 17351644 (Version 1)
Quarter: 2020Q1

REPORT INFORMATION
  Report Type: Spontaneous
  Country: NO (occurrence: NO)
  Receive Date: 20200130
  Receipt Date: 20200130
  Transmission Date: 20200409
  Serious: Yes (Death, Other)
  Sender: FDA-Public Use
  Company Number: NO-MYLANLABS-2020M1011762

PATIENT
  Sex: Male

DRUGS (12)
  1. KETAMINE HYDROCHLORIDE. [Suspect]
     Active Substance: KETAMINE HYDROCHLORIDE
     Dosage: 1 DOSAGE FORM, PRN, INCREASED DOSE AS NEEDED
     Route: 065
     Dates: start: 201012
  2. STESOLID [Suspect]
     Active Substance: DIAZEPAM
     Indication: PAIN
     Dosage: 1 DOSAGE FORM, PRN, INCREASED DOSE, AS NEEDD
     Route: 065
     Dates: start: 20101118
  3. STESOLID [Suspect]
     Active Substance: DIAZEPAM
     Dosage: 1 DOSAGE FORM, PRN, INCREASED DOSE, AS NEEDD
     Route: 065
     Dates: start: 201012
  4. VIVAL [Suspect]
     Active Substance: DIAZEPAM
     Indication: STRESS
     Dosage: UNK
     Route: 065
  5. METHADONE [Suspect]
     Active Substance: METHADONE HYDROCHLORIDE
     Indication: PRODUCT USED FOR UNKNOWN INDICATION
     Dosage: UNK
     Route: 065
  6. KETORAX [Suspect]
     Active Substance: KETOBEMIDONE HYDROCHLORIDE
     Indication: PAIN
     Dosage: 1 DOSAGE FORM, PRN, UNK UNK, AS NEEDED
     Route: 065
     Dates: start: 2011
  7. LIDOCAINE. [Suspect]
     Active Substance: LIDOCAINE
     Dosage: 1 DOSAGE FORM, PRN, INCREASED DOSE, AS NEEDED
     Route: 065
     Dates: start: 201012
  8. MIDAZOLAM HYDROCHLORIDE. [Suspect]
     Active Substance: MIDAZOLAM HYDROCHLORIDE
     Indication: PAIN
     Dosage: 1 DOSAGE FORM, PRN, DOSE INCREASING, AS NEEDED
     Route: 065
     Dates: start: 201101
  9. KETAMINE HYDROCHLORIDE. [Suspect]
     Active Substance: KETAMINE HYDROCHLORIDE
     Indication: PAIN
     Dosage: 1 DOSAGE FORM, PRN, UNK UNK, AS NEEDED
     Route: 065
     Dates: start: 20101118
  10. LIDOCAINE. [Suspect]
     Active Substance: LIDOCAINE
     Indication: PAIN
     Dosage: 1 DOSAGE FORM, PRN, UNK UNK, AS NEEDED
     Route: 065
     Dates: start: 20101118
  11. MORPHINE [Suspect]
     Active Substance: MORPHINE
     Indication: PAIN
     Dosage: UNK
     Route: 065
  12. LYRICA [Suspect]
     Active Substance: PREGABALIN
     Indication: PAIN
     Dosage: UNK
     Route: 065

REACTIONS (8)
  - Loss of personal independence in daily activities [Unknown]
  - Sleep disorder [Unknown]
  - Weight decreased [Unknown]
  - Drug ineffective [Fatal]
  - Somatic symptom disorder [Unknown]
  - Toxicity to various agents [Fatal]
  - Decreased appetite [Unknown]
  - Drug dependence [Unknown]

NARRATIVE: CASE EVENT DATE: 20150221
